FAERS Safety Report 23813924 (Version 1)
Quarter: 2024Q2

REPORT INFORMATION
  Report Type: Spontaneous
  Country: CN (occurrence: CN)
  Receive Date: 20240503
  Receipt Date: 20240503
  Transmission Date: 20240715
  Serious: Yes (Hospitalization, Other)
  Sender: FDA-Public Use
  Company Number: CN-SHANGHAI JUNSHI BIOSCIENCES CO., LTD.-CN2024009902

PATIENT

DRUGS (6)
  1. TORIPALIMAB [Suspect]
     Active Substance: TORIPALIMAB
     Indication: Ureteric cancer metastatic
     Dosage: 240 MG
     Route: 042
     Dates: start: 20240401, end: 20240401
  2. TORIPALIMAB [Suspect]
     Active Substance: TORIPALIMAB
     Indication: Transitional cell carcinoma
  3. CISPLATIN [Suspect]
     Active Substance: CISPLATIN
     Indication: Ureteric cancer metastatic
     Dosage: 40 MG, QD, D1-D3
     Dates: start: 20240329, end: 20240331
  4. CISPLATIN [Suspect]
     Active Substance: CISPLATIN
     Indication: Transitional cell carcinoma
  5. GEMCITABINE HYDROCHLORIDE [Suspect]
     Active Substance: GEMCITABINE HYDROCHLORIDE
     Indication: Ureteric cancer metastatic
     Dosage: 1600 MG (D1, D8), PUMPING
     Dates: start: 20240329, end: 20240405
  6. GEMCITABINE HYDROCHLORIDE [Suspect]
     Active Substance: GEMCITABINE HYDROCHLORIDE
     Indication: Transitional cell carcinoma

REACTIONS (3)
  - Myelosuppression [Recovering/Resolving]
  - Dermatitis allergic [Recovering/Resolving]
  - Off label use [Unknown]

NARRATIVE: CASE EVENT DATE: 20240401
